FAERS Safety Report 5749912-7 (Version None)
Quarter: 2008Q2

REPORT INFORMATION
  Report Type: 
  Country: None (occurrence: None)
  Receive Date: 20080520
  Receipt Date: 20080520
  Transmission Date: 20081010
  Serious: Yes (Death, Hospitalization)
  Sender: FDA-Public Use
  Company Number: None

PATIENT
  Sex: Female
  Weight: 111 kg

DRUGS (8)
  1. CARBOPLATIN [Suspect]
     Dosage: 708 MG
     Dates: start: 20080215, end: 20080215
  2. TAXOL [Suspect]
     Dosage: 350 MG
     Dates: end: 20080215
  3. COMPAZINE [Concomitant]
  4. MACROBID [Concomitant]
  5. PERCOCET [Concomitant]
  6. ZOFRAN [Concomitant]
  7. LIPITOR [Concomitant]
  8. VITAMINS [Concomitant]

REACTIONS (16)
  - ADENOCARCINOMA [None]
  - ASCITES [None]
  - BLOOD GLUCOSE INCREASED [None]
  - BLOOD POTASSIUM INCREASED [None]
  - BLOOD SODIUM DECREASED [None]
  - CARDIO-RESPIRATORY ARREST [None]
  - DECREASED APPETITE [None]
  - HAEMOGLOBIN DECREASED [None]
  - ILEUS [None]
  - METASTASES TO PERITONEUM [None]
  - PELVIC MASS [None]
  - PLEURAL EFFUSION [None]
  - PULMONARY EMBOLISM [None]
  - TROPONIN INCREASED [None]
  - UNRESPONSIVE TO STIMULI [None]
  - WHITE BLOOD CELL COUNT DECREASED [None]
